FAERS Safety Report 9340914 (Version 1)
Quarter: 2013Q2

REPORT INFORMATION
  Report Type: Spontaneous
  Country: DK (occurrence: None)
  Receive Date: 20130531
  Receipt Date: 20130531
  Transmission Date: 20140414
  Serious: Yes (Life-Threatening, Hospitalization)
  Sender: FDA-Public Use
  Company Number: 2013036109

PATIENT
  Age: 41 Year
  Sex: Male

DRUGS (1)
  1. PRIVIGEN (IMMUNE GLOBULIN INTRAVENOUS (HUJAN) 10% LIQUID) SOLUTION FOR INFUSION [Suspect]
     Indication: PRODUCT USED FOR UNKNOWN INDICATION
     Dosage: 40000 MG PRN, STYRKE: 100 MG/ML. DOSIS: 40000 *
     Route: 042
     Dates: start: 20130426, end: 20130426

REACTIONS (2)
  - Asthma [None]
  - Oxygen saturation decreased [None]
